FAERS Safety Report 7249081-0 (Version None)
Quarter: 2011Q1

REPORT INFORMATION
  Report Type: 
  Country: None (occurrence: None)
  Receive Date: 20110121
  Receipt Date: 20110121
  Transmission Date: 20110831
  Serious: Yes (Other)
  Sender: FDA-Public Use
  Company Number: None

PATIENT
  Sex: Female
  Weight: 54.4316 kg

DRUGS (1)
  1. BUPROPION XL 350 MG [Suspect]
     Indication: DEPRESSION
     Dosage: 350 MG 1 X DAILY PO
     Route: 048
     Dates: start: 20080101, end: 20101201

REACTIONS (2)
  - PANIC ATTACK [None]
  - ACTIVITIES OF DAILY LIVING IMPAIRED [None]
